FAERS Safety Report 7543284-3 (Version None)
Quarter: 2011Q2

REPORT INFORMATION
  Report Type: 
  Country: None (occurrence: None)
  Receive Date: 20110613
  Receipt Date: 20110606
  Transmission Date: 20111010
  Serious: Yes (Other)
  Sender: FDA-Public Use
  Company Number: PHHY2011GB50890

PATIENT
  Age: 15 Year
  Sex: Male

DRUGS (1)
  1. CITALOPRAM HYDROBROMIDE [Suspect]
     Indication: DEPRESSION

REACTIONS (6)
  - IRRITABILITY [None]
  - IMPULSIVE BEHAVIOUR [None]
  - SLEEP DISORDER [None]
  - DISINHIBITION [None]
  - BIPOLAR DISORDER [None]
  - RESTLESSNESS [None]
